FAERS Safety Report 25471598 (Version 3)
Quarter: 2025Q4

REPORT INFORMATION
  Report Type: Spontaneous
  Country: EU (occurrence: EU)
  Receive Date: 20250624
  Receipt Date: 20251231
  Transmission Date: 20260118
  Serious: Yes (Life-Threatening, Hospitalization, Other)
  Sender: ALKEM
  Company Number: None

PATIENT
  Age: 14 Year
  Sex: Female

DRUGS (25)
  1. MYCOPHENOLATE MOFETIL [Suspect]
     Active Substance: MYCOPHENOLATE MOFETIL
     Indication: Immunosuppressant drug therapy
     Dosage: UNK
     Route: 065
  2. MYCOPHENOLATE MOFETIL [Suspect]
     Active Substance: MYCOPHENOLATE MOFETIL
     Dosage: UNK (RECHALLENGE DOSE)
     Route: 065
  3. TACROLIMUS [Suspect]
     Active Substance: TACROLIMUS
     Indication: Immunosuppressant drug therapy
     Dosage: UNK
     Route: 065
  4. ITRACONAZOLE [Suspect]
     Active Substance: ITRACONAZOLE
     Indication: Petit mal epilepsy
     Dosage: UNK
     Route: 065
  5. LAMOTRIGINE [Suspect]
     Active Substance: LAMOTRIGINE
     Indication: Petit mal epilepsy
     Dosage: UNK
     Route: 065
  6. LAMOTRIGINE [Suspect]
     Active Substance: LAMOTRIGINE
     Dosage: UNK (INCREASED DOSE)
     Route: 065
  7. METHYLPREDNISOLONE [Suspect]
     Active Substance: METHYLPREDNISOLONE
     Indication: Kidney transplant rejection
     Dosage: 6000 GRAM, ONCE (HIGH DOSE A TOTAL OF THREE PULSES OF 2000 G)
     Route: 065
  8. METHYLPREDNISOLONE [Suspect]
     Active Substance: METHYLPREDNISOLONE
     Indication: Purpura
     Dosage: 1 MILLIGRAM/KILOGRAM, QD
     Route: 065
  9. BASILIXIMAB [Suspect]
     Active Substance: BASILIXIMAB
     Indication: Immunosuppressant drug therapy
     Dosage: UNK (INDUCTION THERAPY)
     Route: 065
  10. BASILIXIMAB [Suspect]
     Active Substance: BASILIXIMAB
     Indication: Transplant rejection
  11. CYCLOSPORINE [Suspect]
     Active Substance: CYCLOSPORINE
     Indication: Prophylaxis against graft versus host disease
     Dosage: UNK
     Route: 065
  12. CYCLOSPORINE [Suspect]
     Active Substance: CYCLOSPORINE
     Dosage: UNK (INCREASED DOSE)
     Route: 065
  13. ETHOSUXIMIDE [Suspect]
     Active Substance: ETHOSUXIMIDE
     Indication: Petit mal epilepsy
     Dosage: UNK
     Route: 065
  14. ETHOSUXIMIDE [Suspect]
     Active Substance: ETHOSUXIMIDE
     Dosage: UNK (DOSE REDUCED)
     Route: 065
  15. ALEMTUZUMAB [Concomitant]
     Active Substance: ALEMTUZUMAB
     Indication: Bone marrow conditioning regimen
     Dosage: UNK
     Route: 065
  16. CASPOFUNGIN [Concomitant]
     Active Substance: CASPOFUNGIN
     Indication: Antifungal treatment
     Dosage: UNK
     Route: 065
  17. CASPOFUNGIN [Concomitant]
     Active Substance: CASPOFUNGIN
     Indication: Purpura
  18. CYCLOPHOSPHAMIDE [Concomitant]
     Active Substance: CYCLOPHOSPHAMIDE
     Indication: Bone marrow conditioning regimen
     Dosage: UNK
     Route: 065
  19. DIENOGEST\ETHINYL ESTRADIOL [Concomitant]
     Active Substance: DIENOGEST\ETHINYL ESTRADIOL
     Indication: Intermenstrual bleeding
     Dosage: UNK
     Route: 048
  20. FLUCONAZOLE [Concomitant]
     Active Substance: FLUCONAZOLE
     Indication: Antifungal treatment
     Dosage: UNK
     Route: 065
  21. FLUDARABINE [Concomitant]
     Active Substance: FLUDARABINE PHOSPHATE
     Indication: Bone marrow conditioning regimen
     Dosage: UNK
     Route: 065
  22. LEVETIRACETAM [Concomitant]
     Active Substance: LEVETIRACETAM
     Indication: Seizure
     Dosage: UNK
     Route: 065
  23. METHOTREXATE [Concomitant]
     Active Substance: METHOTREXATE
     Indication: Prophylaxis against graft versus host disease
     Dosage: UNK
     Route: 065
  24. SUMATRIPTAN [Concomitant]
     Active Substance: SUMATRIPTAN
     Indication: Migraine
     Dosage: UNK
     Route: 065
  25. SUMATRIPTAN [Concomitant]
     Active Substance: SUMATRIPTAN
     Indication: Headache

REACTIONS (22)
  - Pericardial effusion [Unknown]
  - Thrombotic microangiopathy [Unknown]
  - Renal impairment [Unknown]
  - Polyserositis [Unknown]
  - Multiple organ dysfunction syndrome [Unknown]
  - Petit mal epilepsy [Unknown]
  - Aplastic anaemia [Unknown]
  - Immune thrombocytopenia [Unknown]
  - Febrile neutropenia [Unknown]
  - Respiratory failure [Unknown]
  - Cytomegalovirus infection reactivation [Unknown]
  - Cytomegalovirus viraemia [Unknown]
  - Infection reactivation [Unknown]
  - Hypertension [Unknown]
  - BK virus infection [Unknown]
  - Leukopenia [Recovering/Resolving]
  - Epstein-Barr virus infection [Unknown]
  - Parvovirus B19 infection [Unknown]
  - Transplant rejection [Unknown]
  - COVID-19 [Unknown]
  - Acute graft versus host disease [Unknown]
  - Purpura [Recovering/Resolving]
